FAERS Safety Report 8969829 (Version 1)
Quarter: 2012Q4

REPORT INFORMATION
  Report Type: 
  Country: US (occurrence: US)
  Receive Date: 20121218
  Receipt Date: 20121218
  Transmission Date: 20130627
  Serious: No
  Sender: FDA-Public Use
  Company Number: US-BRISTOL-MYERS SQUIBB COMPANY-16536591

PATIENT
  Age: 73 Year
  Sex: Male

DRUGS (2)
  1. ABILIFY [Suspect]
     Indication: DEPRESSION
     Dosage: Dose reduced:2 mg to 1 mg
  2. CYMBALTA [Suspect]

REACTIONS (2)
  - Dyskinesia [Unknown]
  - Muscle spasms [Unknown]
